FAERS Safety Report 24175528 (Version 1)
Quarter: 2024Q3

REPORT INFORMATION
  Report Type: Spontaneous
  Country: US (occurrence: US)
  Receive Date: 20240805
  Receipt Date: 20240805
  Transmission Date: 20241017
  Serious: No
  Sender: EVOKE PHARMA
  Company Number: US-EVOKE PHARMA, INC.-2024EVO000017

PATIENT
  Sex: Female

DRUGS (1)
  1. GIMOTI [Suspect]
     Active Substance: METOCLOPRAMIDE HYDROCHLORIDE
     Indication: Dyspepsia
     Dosage: 15 MILLIGRAM, 1 SPRAY BID
     Route: 045
     Dates: start: 20240101, end: 20240102

REACTIONS (3)
  - Dyspepsia [Recovered/Resolved]
  - Abdominal pain upper [Not Recovered/Not Resolved]
  - Off label use [Unknown]

NARRATIVE: CASE EVENT DATE: 20240101
